FAERS Safety Report 25270876 (Version 1)
Quarter: 2025Q2

REPORT INFORMATION
  Report Type: Spontaneous
  Country: ES (occurrence: ES)
  Receive Date: 20250506
  Receipt Date: 20250506
  Transmission Date: 20250716
  Serious: Yes (Hospitalization, Other)
  Sender: RANBAXY
  Company Number: ES-SUN PHARMACEUTICAL INDUSTRIES LTD-2025R1-505821

PATIENT
  Age: 66 Year
  Sex: Male

DRUGS (4)
  1. SPIRONOLACTONE [Suspect]
     Active Substance: SPIRONOLACTONE
     Indication: Ischaemic cardiomyopathy
     Route: 065
  2. DAPAGLIFLOZIN [Suspect]
     Active Substance: DAPAGLIFLOZIN
     Indication: Ischaemic cardiomyopathy
     Route: 065
  3. VALSARTAN [Suspect]
     Active Substance: VALSARTAN
     Indication: Ischaemic cardiomyopathy
     Route: 065
  4. SACUBITRIL [Suspect]
     Active Substance: SACUBITRIL
     Indication: Ischaemic cardiomyopathy
     Route: 065

REACTIONS (2)
  - Cholangitis [Unknown]
  - Post procedural bile leak [Unknown]
